FAERS Safety Report 4566334-5 (Version None)
Quarter: 2005Q1

REPORT INFORMATION
  Report Type: 
  Country: None (occurrence: None)
  Receive Date: 20050126
  Receipt Date: 20050126
  Transmission Date: 20050727
  Serious: Yes (Other)
  Sender: FDA-Public Use
  Company Number: None

PATIENT
  Age: 56 Year
  Sex: Male
  Weight: 108.4 kg

DRUGS (12)
  1. LOVASTATIN [Suspect]
  2. PHENOBARBITAL [Concomitant]
  3. ISOSORBIDE DINITRATE [Concomitant]
  4. FOSINOPRIL [Concomitant]
  5. DILANTIN [Concomitant]
  6. QUETIAPINE FUMARATE [Concomitant]
  7. DILTIAZEM (INWOOD) [Concomitant]
  8. OMEPRAZOLE [Concomitant]
  9. PRAZOSIN HCL [Concomitant]
  10. NITROGLYCERIN [Concomitant]
  11. VITAMIN B COMPLEX/ VITAMIN C [Concomitant]
  12. ALBUTEROL SULFATE AND IPRATROPIUM BROMIDE [Concomitant]

REACTIONS (1)
  - MYALGIA [None]
